FAERS Safety Report 24923893 (Version 2)
Quarter: 2025Q1

REPORT INFORMATION
  Report Type: Spontaneous
  Country: US (occurrence: US)
  Receive Date: 20250204
  Receipt Date: 20250213
  Transmission Date: 20250409
  Serious: No
  Sender: PFIZER
  Company Number: US-PFIZER INC-202500022605

PATIENT
  Age: 72 Year
  Sex: Male

DRUGS (2)
  1. CIBINQO [Suspect]
     Active Substance: ABROCITINIB
     Indication: Dermatitis atopic
     Dosage: 100 MG, 1X/DAY (IN THE EVENING )
     Dates: start: 2024
  2. CIBINQO [Suspect]
     Active Substance: ABROCITINIB
     Indication: Pruritus

REACTIONS (1)
  - Therapeutic product effect incomplete [Unknown]
